FAERS Safety Report 15249183 (Version 2)
Quarter: 2018Q3

REPORT INFORMATION
  Report Type: Spontaneous
  Country: DE (occurrence: DE)
  Receive Date: 20180807
  Receipt Date: 20180827
  Transmission Date: 20181010
  Serious: Yes (Hospitalization)
  Sender: FDA-Public Use
  Company Number: DE-JNJFOC-20180804143

PATIENT
  Age: 57 Year
  Sex: Female
  Weight: 81 kg

DRUGS (1)
  1. REMICADE [Suspect]
     Active Substance: INFLIXIMAB
     Indication: CROHN^S DISEASE
     Dosage: FREQUENCY: 8 TO 10 WEEKS
     Route: 042
     Dates: start: 20120720

REACTIONS (4)
  - Product use issue [Unknown]
  - Pancreatitis [Recovered/Resolved]
  - Off label use [Unknown]
  - Duodenitis [Recovered/Resolved]

NARRATIVE: CASE EVENT DATE: 20120720
